FAERS Safety Report 4985801-3 (Version None)
Quarter: 2006Q2

REPORT INFORMATION
  Report Type: 
  Country: None (occurrence: None)
  Receive Date: 20060428
  Receipt Date: 20051011
  Transmission Date: 20061013
  Serious: No
  Sender: FDA-Public Use
  Company Number: US-GLAXOSMITHKLINE-A0577842A

PATIENT
  Age: 58 Year
  Sex: Male

DRUGS (3)
  1. AMERGE [Suspect]
     Indication: MIGRAINE
     Dosage: 1TAB AS REQUIRED
     Route: 048
  2. TOPAMAX [Concomitant]
  3. ATENOLOL [Concomitant]

REACTIONS (3)
  - IMMUNE SYSTEM DISORDER [None]
  - INFLUENZA [None]
  - NASOPHARYNGITIS [None]
